FAERS Safety Report 6474492-0 (Version None)
Quarter: 2009Q4

REPORT INFORMATION
  Report Type: 
  Country: None (occurrence: None)
  Receive Date: 20091204
  Receipt Date: 20091127
  Transmission Date: 20100525
  Serious: Yes (Other)
  Sender: FDA-Public Use
  Company Number: SE-ASTRAZENECA-2009SE29232

PATIENT
  Sex: Male

DRUGS (2)
  1. RHINOCORT [Suspect]
     Route: 045
  2. RINEXIN [Suspect]
     Route: 065

REACTIONS (1)
  - CEREBROVASCULAR ACCIDENT [None]
